FAERS Safety Report 17587512 (Version 5)
Quarter: 2020Q3

REPORT INFORMATION
  Report Type: Report from Study
  Country: US (occurrence: US)
  Receive Date: 20200326
  Receipt Date: 20200817
  Transmission Date: 20201102
  Serious: Yes (Hospitalization, Other)
  Sender: FDA-Public Use
  Company Number: US-ACTELION-A-NJ2020-203481

PATIENT
  Age: 30 Year
  Sex: Male

DRUGS (17)
  1. ZOFRAN [Concomitant]
     Active Substance: ONDANSETRON HYDROCHLORIDE
  2. METOLAZONE. [Concomitant]
     Active Substance: METOLAZONE
  3. SILDENAFIL. [Concomitant]
     Active Substance: SILDENAFIL
     Dosage: UNK
  4. METOPROLOL. [Concomitant]
     Active Substance: METOPROLOL
  5. BENZONATATE. [Concomitant]
     Active Substance: BENZONATATE
  6. AMIODARONE [Concomitant]
     Active Substance: AMIODARONE
  7. OPSUMIT [Suspect]
     Active Substance: MACITENTAN
     Indication: PULMONARY ARTERIAL HYPERTENSION
     Dosage: 10 MG, QD
     Route: 048
     Dates: start: 20190506
  8. BISOPROLOL [Concomitant]
     Active Substance: BISOPROLOL
     Dosage: 5 MG, QD
  9. DIGOXIN. [Concomitant]
     Active Substance: DIGOXIN
  10. ONDANSETRON [Concomitant]
     Active Substance: ONDANSETRON
  11. CYCLOBENZAPRINE. [Concomitant]
     Active Substance: CYCLOBENZAPRINE
  12. BUMETANIDE. [Concomitant]
     Active Substance: BUMETANIDE
  13. ROCEPHIN [Concomitant]
     Active Substance: CEFTRIAXONE SODIUM
     Route: 042
  14. PRADAXA [Concomitant]
     Active Substance: DABIGATRAN ETEXILATE MESYLATE
     Dosage: 150 MG, BID
  15. REVATIO [Concomitant]
     Active Substance: SILDENAFIL CITRATE
     Dosage: 20 MG, TID
  16. LORAZEPAM. [Concomitant]
     Active Substance: LORAZEPAM
  17. BUMEX [Concomitant]
     Active Substance: BUMETANIDE
     Dosage: 1 MG, BID

REACTIONS (12)
  - Palpitations [Recovered/Resolved]
  - Streptococcal sepsis [Unknown]
  - Dizziness [Recovered/Resolved]
  - Endocarditis [Unknown]
  - Cardiac failure congestive [Recovered/Resolved]
  - Atrial fibrillation [Recovered/Resolved]
  - Gastroenteritis [Recovered/Resolved]
  - Hypokalaemia [Recovered/Resolved]
  - Fluid retention [Recovered/Resolved]
  - Dehydration [Recovered/Resolved]
  - Cardiac failure [Recovered/Resolved]
  - Asthenia [Recovered/Resolved]

NARRATIVE: CASE EVENT DATE: 20200315
